FAERS Safety Report 23888283 (Version 1)
Quarter: 2024Q2

REPORT INFORMATION
  Report Type: Spontaneous
  Country: FR (occurrence: FR)
  Receive Date: 20240523
  Receipt Date: 20240523
  Transmission Date: 20240715
  Serious: Yes (Death, Life-Threatening, Other)
  Sender: FDA-Public Use
  Company Number: FR-AFSSAPS-TS2024000530

PATIENT
  Age: 33 Year
  Sex: Female

DRUGS (1)
  1. AMOXICILLIN [Suspect]
     Active Substance: AMOXICILLIN
     Indication: Prophylaxis
     Dosage: 2 GRAM
     Route: 042
     Dates: start: 20240128, end: 20240128

REACTIONS (3)
  - Cardio-respiratory arrest [Fatal]
  - Shock [Fatal]
  - Cyanosis [Fatal]

NARRATIVE: CASE EVENT DATE: 20240128
